FAERS Safety Report 4801802-X (Version None)
Quarter: 2005Q4

REPORT INFORMATION
  Report Type: 
  Country: None (occurrence: None)
  Receive Date: 20051018
  Receipt Date: 20050914
  Transmission Date: 20060501
  Serious: Yes (Death, Life-Threatening)
  Sender: FDA-Public Use
  Company Number: US-BRISTOL-MYERS SQUIBB COMPANY-13110937

PATIENT
  Age: 64 Year
  Sex: Male

DRUGS (23)
  1. ERBITUX [Suspect]
     Indication: COLORECTAL CANCER METASTATIC
     Route: 042
     Dates: start: 20050914, end: 20050914
  2. ACCUPRIL [Concomitant]
  3. ACTONEL [Concomitant]
  4. ADVAIR DISKUS 100/50 [Concomitant]
  5. ALOXI [Concomitant]
  6. AMBIEN [Concomitant]
  7. AVASTIN [Concomitant]
  8. BENADRYL [Concomitant]
     Indication: PREMEDICATION
  9. CARDIZEM CD [Concomitant]
  10. CLONIDINE [Concomitant]
  11. COLACE [Concomitant]
  12. COMBIVENT [Concomitant]
  13. CPT-11 [Concomitant]
  14. DECADRON [Concomitant]
  15. DIGOXIN [Concomitant]
  16. DURAGESIC-100 [Concomitant]
  17. FLUOROURACIL [Concomitant]
  18. K-DUR 10 [Concomitant]
  19. LASIX [Concomitant]
  20. LEUCOVORIN [Concomitant]
  21. LORTAB [Concomitant]
  22. PREVACID [Concomitant]
  23. XANAX [Concomitant]

REACTIONS (3)
  - CARDIAC ARREST [None]
  - CARDIAC DISORDER [None]
  - CARDIO-RESPIRATORY ARREST [None]
